FAERS Safety Report 25868346 (Version 1)
Quarter: 2025Q4

REPORT INFORMATION
  Report Type: Spontaneous
  Country: RU (occurrence: RU)
  Receive Date: 20251001
  Receipt Date: 20251001
  Transmission Date: 20260117
  Serious: Yes (Hospitalization, Other)
  Sender: SANDOZ
  Company Number: RU-ASPEN-GLO2025RU008756

PATIENT
  Age: 81 Year
  Sex: Male

DRUGS (5)
  1. DIPRIVAN [Suspect]
     Active Substance: PROPOFOL
     Indication: Induction of anaesthesia
     Dosage: 1.5-2.5 MG/KG
     Route: 065
  2. CISATRACURIUM BESYLATE [Suspect]
     Active Substance: CISATRACURIUM BESYLATE
     Indication: Induction of anaesthesia
     Dosage: 0.1-0.15 MG/KG
     Route: 065
  3. FENTANYL [Suspect]
     Active Substance: FENTANYL
     Indication: Induction and maintenance of anaesthesia
     Dosage: 0.1 MG
     Route: 065
  4. ROPIVACAINE [Suspect]
     Active Substance: ROPIVACAINE
     Indication: Nerve block
     Dosage: 40 ML
     Route: 053
  5. SEVOFLURANE [Suspect]
     Active Substance: SEVOFLURANE
     Indication: Induction and maintenance of anaesthesia
     Dosage: UNK
     Route: 055

REACTIONS (1)
  - Postoperative delirium [Unknown]
